FAERS Safety Report 11094447 (Version 4)
Quarter: 2015Q4

REPORT INFORMATION
  Report Type: Spontaneous
  Country: US (occurrence: US)
  Receive Date: 20150506
  Receipt Date: 20151109
  Transmission Date: 20160304
  Serious: Yes (Death)
  Sender: FDA-Public Use
  Company Number: US-PFIZER INC-2015150221

PATIENT
  Age: 71 Year
  Sex: Male
  Weight: 58 kg

DRUGS (7)
  1. IBRANCE [Suspect]
     Active Substance: PALBOCICLIB
     Indication: LUNG NEOPLASM MALIGNANT
     Dosage: 75 MG, CYCLIC (DAILY, 21 DAYS ON/7 DAYS OFF)
     Route: 048
  2. CREON [Concomitant]
     Active Substance: PANCRELIPASE AMYLASE\PANCRELIPASE LIPASE\PANCRELIPASE PROTEASE
     Dosage: 2400 IU, UNK
     Route: 048
  3. RIFAMPIN. [Concomitant]
     Active Substance: RIFAMPIN
     Dosage: 150 MG, 2X/DAY
     Route: 048
  4. IBRANCE [Suspect]
     Active Substance: PALBOCICLIB
     Dosage: 125 MG, UNK
     Route: 048
     Dates: start: 20150307, end: 20150412
  5. IBRANCE [Suspect]
     Active Substance: PALBOCICLIB
     Indication: PANCREATIC CARCINOMA METASTATIC
     Dosage: UNK
     Route: 048
  6. METHYLTESTOSTERONE [Concomitant]
     Active Substance: METHYLTESTOSTERONE
     Dosage: 1.5 MG, 1X/DAY
  7. MINIVELLE [Concomitant]
     Active Substance: ESTRADIOL
     Dosage: 0.1 MG, 1X/DAY (24 HOURS)

REACTIONS (9)
  - Product use issue [Unknown]
  - Insomnia [Unknown]
  - Pancreatic carcinoma metastatic [Unknown]
  - Death [Fatal]
  - Disease progression [Unknown]
  - Nausea [Unknown]
  - Skin burning sensation [Unknown]
  - Depression [Unknown]
  - Lung neoplasm malignant [Unknown]
